FAERS Safety Report 6071752-2 (Version None)
Quarter: 2009Q1

REPORT INFORMATION
  Report Type: 
  Country: None (occurrence: None)
  Receive Date: 20090210
  Receipt Date: 20090202
  Transmission Date: 20090719
  Serious: Yes (Other)
  Sender: FDA-Public Use
  Company Number: US-ASTRAZENECA-2009UW02965

PATIENT
  Age: 71 Year
  Sex: Female
  Weight: 81.6 kg

DRUGS (8)
  1. NEXIUM [Suspect]
     Indication: GASTROOESOPHAGEAL REFLUX DISEASE
     Route: 048
     Dates: start: 20010101
  2. PROCHLORPERAZINE [Concomitant]
  3. HYDROCODEINE [Concomitant]
     Indication: PAIN
  4. SPIRIVA [Concomitant]
  5. CARVEDILOL [Concomitant]
  6. VENLAFAXINE HCL [Concomitant]
  7. MIRACLE MOUTHWASH [Concomitant]
  8. PRAVASTATIN [Concomitant]

REACTIONS (1)
  - LUNG NEOPLASM MALIGNANT [None]
